FAERS Safety Report 24703615 (Version 2)
Quarter: 2025Q4

REPORT INFORMATION
  Report Type: Spontaneous
  Country: EU (occurrence: EU)
  Receive Date: 20241206
  Receipt Date: 20251218
  Transmission Date: 20260117
  Serious: Yes (Other)
  Sender: ALKEM
  Company Number: None

PATIENT
  Sex: Male

DRUGS (15)
  1. MYCOPHENOLATE MOFETIL [Suspect]
     Active Substance: MYCOPHENOLATE MOFETIL
     Indication: Prophylaxis against transplant rejection
     Dosage: 1200 MILLIGRAM/SQ. METER, QD
     Route: 065
  2. MYCOPHENOLATE MOFETIL [Suspect]
     Active Substance: MYCOPHENOLATE MOFETIL
     Indication: Immunosuppressant drug therapy
  3. TACROLIMUS [Suspect]
     Active Substance: TACROLIMUS
     Indication: Prophylaxis against transplant rejection
     Dosage: 0.3 MILLIGRAM/KILOGRAM, QD
     Route: 065
  4. TACROLIMUS [Suspect]
     Active Substance: TACROLIMUS
     Indication: Transplant rejection
  5. METHYLPREDNISOLONE [Suspect]
     Active Substance: METHYLPREDNISOLONE
     Indication: Prophylaxis against transplant rejection
     Dosage: UNK (PULSES)
     Route: 065
  6. METHYLPREDNISOLONE [Suspect]
     Active Substance: METHYLPREDNISOLONE
     Indication: Transplant rejection
  7. CANDESARTAN [Suspect]
     Active Substance: CANDESARTAN
     Indication: Drug therapy
     Dosage: 0.15 MILLIGRAM/KILOGRAM, QD  (BODY WEIGHT PER DAY)
     Route: 065
  8. CANDESARTAN [Suspect]
     Active Substance: CANDESARTAN
     Dosage: 0.1 MILLIGRAM/KILOGRAM
     Route: 065
  9. CYCLOSPORINE [Suspect]
     Active Substance: CYCLOSPORINE
     Indication: Prophylaxis against transplant rejection
     Dosage: UNK (MICROEMULSION)
     Route: 065
  10. CYCLOSPORINE [Suspect]
     Active Substance: CYCLOSPORINE
     Indication: Immunosuppressant drug therapy
  11. HUMAN IMMUNOGLOBULIN G [Suspect]
     Active Substance: HUMAN IMMUNOGLOBULIN G
     Indication: Immunosuppressant drug therapy
     Dosage: UNK
     Route: 042
  12. OKT3 [Suspect]
     Active Substance: MUROMONAB-CD3
     Indication: Transplant rejection
     Dosage: UNK
     Route: 065
  13. RITUXIMAB [Suspect]
     Active Substance: RITUXIMAB
     Indication: Prophylaxis against transplant rejection
     Dosage: 375 MILLIGRAM/SQ. METER
     Route: 042
  14. ILOPROST [Concomitant]
     Active Substance: ILOPROST
     Indication: Product used for unknown indication
     Dosage: 0.5 NANOGRAM PER KILOGRAM (INFUSED OVER 6 HOURS)
     Route: 065
  15. THYMOGLOBULIN [Concomitant]
     Active Substance: LAPINE T-LYMPHOCYTE IMMUNE GLOBULIN
     Indication: Immunosuppressant drug therapy
     Dosage: UNK (CUMULATIVE DOSE OF 4.5 MG/KG BODY WEIGHT)
     Route: 042

REACTIONS (3)
  - Pyelonephritis [Unknown]
  - Pneumonia [Unknown]
  - Transplant rejection [Unknown]
